FAERS Safety Report 17530946 (Version 3)
Quarter: 2020Q1

REPORT INFORMATION
  Report Type: Spontaneous
  Country: FR (occurrence: FR)
  Receive Date: 20200312
  Receipt Date: 20200327
  Transmission Date: 20200409
  Serious: Yes (Hospitalization, Other)
  Sender: FDA-Public Use
  Company Number: FR-AUROBINDO-AUR-APL-2020-012261

PATIENT
  Age: 86 Year
  Sex: Male
  Weight: 77 kg

DRUGS (17)
  1. LASILIX [Suspect]
     Active Substance: FUROSEMIDE
     Indication: CARDIAC FAILURE
     Dosage: UNK, ONCE A DAY
     Route: 002
     Dates: start: 201911
  2. ALLOPURINOL. [Concomitant]
     Active Substance: ALLOPURINOL
     Indication: GOUT
     Dosage: UNK
     Route: 065
     Dates: start: 20150127
  3. FUROSEMIDE TABLETS [Suspect]
     Active Substance: FUROSEMIDE
     Indication: CARDIAC FAILURE
     Dosage: 250 MILLIGRAM, ONCE A DAY
     Route: 002
     Dates: start: 20140130, end: 20191031
  4. FUROSEMIDE TABLETS [Suspect]
     Active Substance: FUROSEMIDE
     Dosage: 80 MILLIGRAM, ONCE A DAY (DOSE DECREASED)
     Route: 002
     Dates: start: 20191113, end: 201911
  5. FUROSEMIDE TABLETS [Suspect]
     Active Substance: FUROSEMIDE
     Dosage: 1 DOSAGE FORM, ONCE A DAY (80 UNK, ONCE A DAY)
     Route: 002
     Dates: start: 20191113, end: 201911
  6. COUMADINE [Concomitant]
     Active Substance: WARFARIN SODIUM
     Indication: ATRIAL FIBRILLATION
     Dosage: UNK
     Route: 048
     Dates: start: 20130211, end: 201911
  7. COUMADINE [Concomitant]
     Active Substance: WARFARIN SODIUM
     Dosage: 2 MILLIGRAM
     Route: 048
     Dates: start: 201911
  8. ALFUZOSIN [Concomitant]
     Active Substance: ALFUZOSIN
     Dosage: 1 DOSAGE FORM, ONCE A DAY (LP (UNSPECIFIED))
     Route: 048
     Dates: start: 201911
  9. BISOPROLOL FILM-COATED TABLETS [Suspect]
     Active Substance: BISOPROLOL
     Dosage: 5 MILLIGRAM, (0.5 DAY) (DOSE INCREASED)
     Route: 002
     Dates: start: 20191113, end: 201911
  10. ALFUZOSIN [Concomitant]
     Active Substance: ALFUZOSIN
     Indication: PROSTATIC ADENOMA
     Dosage: UNK
     Route: 048
     Dates: start: 20190822, end: 201911
  11. BISOPROLOL FILM-COATED TABLETS [Suspect]
     Active Substance: BISOPROLOL
     Indication: ATRIAL FIBRILLATION
     Dosage: 1.25 MILLIGRAM, ONCE A DAY
     Route: 002
     Dates: start: 20130211, end: 20191031
  12. TAFAMIDIS MEGLUMINE [Suspect]
     Active Substance: TAFAMIDIS MEGLUMINE
     Indication: CARDIAC AMYLOIDOSIS
     Dosage: 61 MILLIGRAM, ONCE A DAY
     Route: 048
     Dates: start: 20191017
  13. CETIRIZINE [Concomitant]
     Active Substance: CETIRIZINE HYDROCHLORIDE
     Indication: PRURITUS
     Dosage: UNK
     Route: 065
     Dates: start: 20190822
  14. COUMADINE [Concomitant]
     Active Substance: WARFARIN SODIUM
     Dosage: 1 DOSAGE FORM, ONCE A DAY
     Route: 048
     Dates: start: 201911
  15. BISOPROLOL FILM-COATED TABLETS [Suspect]
     Active Substance: BISOPROLOL
     Dosage: 1.25 MILLIGRAM, ONCE A DAY (DOSE DECREASED)
     Route: 002
     Dates: start: 201911
  16. FUROSEMIDE TABLETS [Suspect]
     Active Substance: FUROSEMIDE
     Dosage: UNK UNK, ONCE A DAY, (DOSE INCREASED (500 MG 1/2 PILL/DAY, 40 MG 1 PILL/DAY)
     Route: 002
     Dates: start: 201911
  17. FUROSEMIDE TABLETS [Suspect]
     Active Substance: FUROSEMIDE
     Dosage: 2 DOSAGE FORM, ONCE A DAY
     Route: 002
     Dates: start: 201911, end: 201911

REACTIONS (1)
  - Cardiac failure [Recovered/Resolved]

NARRATIVE: CASE EVENT DATE: 20191116
